FAERS Safety Report 6264761-1 (Version None)
Quarter: 2009Q3

REPORT INFORMATION
  Report Type: 
  Country: None (occurrence: None)
  Receive Date: 20090710
  Receipt Date: 20090702
  Transmission Date: 20100115
  Serious: Yes (Hospitalization)
  Sender: FDA-Public Use
  Company Number: IT-SANOFI-SYNTHELABO-A06200900340

PATIENT
  Sex: Female

DRUGS (2)
  1. XELODA [Concomitant]
     Indication: COLON CANCER
     Dosage: UNK
     Route: 048
     Dates: start: 20090608, end: 20090629
  2. ELOXATIN [Suspect]
     Indication: COLON CANCER
     Route: 041
     Dates: start: 20090629, end: 20090629

REACTIONS (2)
  - DYSPNOEA [None]
  - LARYNGOSPASM [None]
